FAERS Safety Report 14952308 (Version 1)
Quarter: 2018Q2

REPORT INFORMATION
  Report Type: Spontaneous
  Country: US (occurrence: US)
  Receive Date: 20180530
  Receipt Date: 20180530
  Transmission Date: 20180711
  Serious: No
  Sender: FDA-Public Use
  Company Number: US-PFIZER INC-2017054414

PATIENT
  Age: 68 Year
  Sex: Female
  Weight: 82 kg

DRUGS (2)
  1. LETROZOLE. [Concomitant]
     Active Substance: LETROZOLE
     Dosage: 2.5 MG, UNK
  2. IBRANCE [Suspect]
     Active Substance: PALBOCICLIB
     Indication: BREAST CANCER FEMALE
     Dosage: 125 MG, 1X/DAY (FOR 21 DAYS)
     Route: 048

REACTIONS (6)
  - Dysphonia [Unknown]
  - Appetite disorder [Unknown]
  - Oropharyngeal pain [Unknown]
  - Aphonia [Unknown]
  - Nasopharyngitis [Unknown]
  - Dysphagia [Unknown]
